FAERS Safety Report 23013574 (Version 3)
Quarter: 2024Q3

REPORT INFORMATION
  Report Type: Spontaneous
  Country: US (occurrence: US)
  Receive Date: 20231001
  Receipt Date: 20240807
  Transmission Date: 20241016
  Serious: No
  Sender: SANOFI AVENTIS
  Company Number: US-SA-SAC20230928000308

PATIENT
  Age: 17 Year
  Sex: Female

DRUGS (10)
  1. DUPIXENT [Suspect]
     Active Substance: DUPILUMAB
     Indication: Dermatitis atopic
     Dosage: 300 MG, QOW
     Route: 058
     Dates: start: 20210820
  2. DUPIXENT [Suspect]
     Active Substance: DUPILUMAB
     Indication: Eczema
  3. DUPIXENT [Suspect]
     Active Substance: DUPILUMAB
     Indication: Asthma
  4. ALBUTEROL SULFATE [Concomitant]
     Active Substance: ALBUTEROL SULFATE
     Dosage: UNK
  5. DESONIDE [Concomitant]
     Active Substance: DESONIDE
  6. DESONIDE [Concomitant]
     Active Substance: DESONIDE
  7. EPIPEN [Concomitant]
     Active Substance: EPINEPHRINE
  8. DOXYCYCLINE [Concomitant]
     Active Substance: DOXYCYCLINE\DOXYCYCLINE HYCLATE
  9. MOMETASONE [Concomitant]
     Active Substance: MOMETASONE
  10. CORTICOSTEROID NOS [Concomitant]
     Active Substance: CORTICOSTEROID NOS

REACTIONS (9)
  - Sleep disorder due to a general medical condition [Unknown]
  - Initial insomnia [Recovered/Resolved]
  - Pruritus [Recovered/Resolved]
  - Injection site pain [Not Recovered/Not Resolved]
  - Eczema [Not Recovered/Not Resolved]
  - Rash [Not Recovered/Not Resolved]
  - Discomfort [Not Recovered/Not Resolved]
  - Dermatitis atopic [Recovered/Resolved]
  - Asthma [Recovered/Resolved]
